FAERS Safety Report 11485072 (Version 2)
Quarter: 2015Q3

REPORT INFORMATION
  Report Type: Spontaneous
  Country: US (occurrence: US)
  Receive Date: 20150903
  Receipt Date: 20150903
  Transmission Date: 20151125
  Serious: Yes (Other)
  Sender: FDA-Public Use
  Company Number: US-ELI_LILLY_AND_COMPANY-US201205004711

PATIENT
  Age: 53 Year
  Sex: Female

DRUGS (4)
  1. PERCOCET [Concomitant]
     Active Substance: ACETAMINOPHEN\OXYCODONE HYDROCHLORIDE
     Dosage: UNK UNK, QID
  2. OXYCONTIN [Concomitant]
     Active Substance: OXYCODONE HYDROCHLORIDE
     Dosage: UNK, TID
  3. SIMVASTATIN. [Concomitant]
     Active Substance: SIMVASTATIN
  4. CYMBALTA [Suspect]
     Active Substance: DULOXETINE HYDROCHLORIDE
     Dosage: 60 MG, QD
     Dates: start: 2005, end: 20120301

REACTIONS (17)
  - Pigmentation disorder [Recovering/Resolving]
  - Myalgia [Recovering/Resolving]
  - Skin wound [Not Recovered/Not Resolved]
  - Skin infection [Not Recovered/Not Resolved]
  - Fatigue [Recovering/Resolving]
  - Insomnia [Not Recovered/Not Resolved]
  - Scar [Recovering/Resolving]
  - Pruritus generalised [Recovering/Resolving]
  - Skin depigmentation [Recovering/Resolving]
  - Nail disorder [Recovering/Resolving]
  - Asthenia [Recovering/Resolving]
  - Urticaria [Recovering/Resolving]
  - Acrochordon [Recovering/Resolving]
  - Suicidal ideation [Unknown]
  - Pain [Not Recovered/Not Resolved]
  - Acne [Recovering/Resolving]
  - Burning sensation [Recovering/Resolving]

NARRATIVE: CASE EVENT DATE: 20120225
